FAERS Safety Report 21113281 (Version 1)
Quarter: 2022Q3

REPORT INFORMATION
  Report Type: Spontaneous
  Country: RU (occurrence: RU)
  Receive Date: 20220721
  Receipt Date: 20220721
  Transmission Date: 20221027
  Serious: Yes (Other)
  Sender: FDA-Public Use
  Company Number: RU-BAYER-2022P007419

PATIENT
  Age: 22 Year
  Sex: Female

DRUGS (2)
  1. DROSPIRENONE\ETHINYL ESTRADIOL [Suspect]
     Active Substance: DROSPIRENONE\ETHINYL ESTRADIOL
     Indication: Menstrual cycle management
     Dosage: UNK
     Route: 048
  2. DROSPIRENONE\ETHINYL ESTRADIOL [Suspect]
     Active Substance: DROSPIRENONE\ETHINYL ESTRADIOL
     Indication: Planning to become pregnant

REACTIONS (6)
  - Pregnancy on oral contraceptive [None]
  - Abortion missed [None]
  - Intentional product use issue [None]
  - Heavy menstrual bleeding [None]
  - Ovarian cyst [None]
  - Drug ineffective [None]

NARRATIVE: CASE EVENT DATE: 20220201
